FAERS Safety Report 23131814 (Version 2)
Quarter: 2024Q1

REPORT INFORMATION
  Report Type: Spontaneous
  Country: US (occurrence: US)
  Receive Date: 20231101
  Receipt Date: 20240112
  Transmission Date: 20240410
  Serious: No
  Sender: FDA-Public Use
  Company Number: US-SA-SAC20231027001438

PATIENT
  Age: 78 Year
  Sex: Female

DRUGS (1)
  1. DUPIXENT [Suspect]
     Active Substance: DUPILUMAB
     Indication: Dermatitis atopic
     Dosage: 300 MG, QOW
     Route: 058

REACTIONS (8)
  - Somnolence [Unknown]
  - Dry skin [Unknown]
  - Sleep disorder [Unknown]
  - Pruritus [Not Recovered/Not Resolved]
  - Eczema [Unknown]
  - Injection site pain [Recovered/Resolved]
  - Rash pruritic [Unknown]
  - Therapeutic response decreased [Unknown]
